FAERS Safety Report 7635318-2 (Version None)
Quarter: 2011Q3

REPORT INFORMATION
  Report Type: 
  Country: None (occurrence: None)
  Receive Date: 20110718
  Receipt Date: 20110630
  Transmission Date: 20111222
  Serious: Yes (Hospitalization)
  Sender: FDA-Public Use
  Company Number: PRED20110035

PATIENT
  Age: 33 Year
  Sex: Male

DRUGS (2)
  1. CYCLOSPORINE [Suspect]
     Indication: IMMUNOSUPPRESSION
  2. PREDNISONE [Suspect]
     Indication: IMMUNOSUPPRESSION
     Dosage: 15-30 MG, DAILY, ORAL
     Route: 048

REACTIONS (14)
  - TRANSPLANT REJECTION [None]
  - HAEMORRHAGE INTRACRANIAL [None]
  - DIARRHOEA [None]
  - BACTERIAL INFECTION [None]
  - PANCYTOPENIA [None]
  - EXOPHTHALMOS [None]
  - DISEASE PROGRESSION [None]
  - BONE MARROW FAILURE [None]
  - APLASTIC ANAEMIA [None]
  - BLOOD CULTURE POSITIVE [None]
  - STEM CELL TRANSPLANT [None]
  - RESPIRATORY TRACT INFECTION [None]
  - KAPOSI'S SARCOMA [None]
  - LYMPHADENOPATHY [None]
